FAERS Safety Report 5903288-0 (Version None)
Quarter: 2008Q3

REPORT INFORMATION
  Report Type: 
  Country: None (occurrence: None)
  Receive Date: 20080930
  Receipt Date: 20080922
  Transmission Date: 20090109
  Serious: Yes (Other)
  Sender: FDA-Public Use
  Company Number: A0747369B

PATIENT
  Age: 25 Year
  Sex: Female
  Weight: 83 kg

DRUGS (5)
  1. LAMICTAL [Suspect]
     Indication: BIPOLAR DISORDER
     Route: 048
  2. ABILIFY [Concomitant]
     Indication: BIPOLAR DISORDER
  3. ZOLOFT [Concomitant]
     Indication: BIPOLAR DISORDER
  4. TRIHEXYPHENIDYL HCL [Concomitant]
     Indication: BIPOLAR DISORDER
  5. NIFEREX [Concomitant]

REACTIONS (5)
  - CAESAREAN SECTION [None]
  - DRUG EXPOSURE DURING PREGNANCY [None]
  - LIVE BIRTH [None]
  - SHORTENED CERVIX [None]
  - VAGINAL HAEMORRHAGE [None]
